FAERS Safety Report 4819016-6 (Version None)
Quarter: 2005Q4

REPORT INFORMATION
  Report Type: 
  Country: None (occurrence: None)
  Receive Date: 20051101
  Receipt Date: 20051011
  Transmission Date: 20060501
  Serious: Yes (Other)
  Sender: FDA-Public Use
  Company Number: EWC051046549

PATIENT
  Age: 65 Year
  Sex: Female

DRUGS (2)
  1. FORSTEO (TERIPARATIDE) [Suspect]
  2. CALCIUM GLUCONATE [Concomitant]

REACTIONS (2)
  - BLOOD CALCIUM DECREASED [None]
  - PARAESTHESIA [None]
